FAERS Safety Report 23960523 (Version 1)
Quarter: 2024Q2

REPORT INFORMATION
  Report Type: Spontaneous
  Country: DE (occurrence: DE)
  Receive Date: 20240611
  Receipt Date: 20240611
  Transmission Date: 20240715
  Serious: Yes (Death, Other)
  Sender: FDA-Public Use
  Company Number: DE-SUN PHARMACEUTICAL INDUSTRIES LTD-2024RR-450929

PATIENT
  Age: 8 Year
  Sex: Male

DRUGS (6)
  1. IRINOTECAN [Suspect]
     Active Substance: IRINOTECAN
     Indication: Alveolar rhabdomyosarcoma
     Dosage: UNK
     Route: 065
     Dates: end: 202210
  2. TEMOZOLOMIDE [Suspect]
     Active Substance: TEMOZOLOMIDE
     Indication: Alveolar rhabdomyosarcoma
     Dosage: UNK
     Route: 065
     Dates: end: 202210
  3. VINORELBINE [Suspect]
     Active Substance: VINORELBINE TARTRATE
     Indication: Alveolar rhabdomyosarcoma
     Dosage: UNK
     Route: 065
     Dates: end: 202210
  4. SIROLIMUS [Suspect]
     Active Substance: SIROLIMUS
     Indication: Alveolar rhabdomyosarcoma
     Dosage: UNK
     Route: 065
     Dates: end: 202210
  5. CYCLOPHOSPHAMIDE [Suspect]
     Active Substance: CYCLOPHOSPHAMIDE
     Indication: Alveolar rhabdomyosarcoma
     Dosage: UNK
     Route: 065
  6. DASATINIB [Suspect]
     Active Substance: DASATINIB
     Indication: Alveolar rhabdomyosarcoma
     Dosage: UNK
     Route: 065
     Dates: end: 202210

REACTIONS (6)
  - Disease progression [Fatal]
  - Metastases to central nervous system [Fatal]
  - Epilepsy [Unknown]
  - Headache [Unknown]
  - Nausea [Unknown]
  - Anxiety [Unknown]

NARRATIVE: CASE EVENT DATE: 20220101
